FAERS Safety Report 8474811-X (Version None)
Quarter: 2012Q2

REPORT INFORMATION
  Report Type: 
  Country: None (occurrence: None)
  Receive Date: 20120628
  Receipt Date: 20120619
  Transmission Date: 20120825
  Serious: Yes (Other)
  Sender: FDA-Public Use
  Company Number: GB-SANOFI-AVENTIS-2012SA043815

PATIENT
  Age: 47 Year
  Sex: Male
  Weight: 111 kg

DRUGS (6)
  1. ISOSORBIDE MONONITRATE [Concomitant]
  2. SIMVASTATIN [Concomitant]
     Dosage: AT NIGHT
  3. BISOPROLOL FUMARATE [Concomitant]
  4. ASPIRIN [Concomitant]
  5. CLOPIDOGREL BISULFATE [Suspect]
     Indication: STENT PLACEMENT
     Dates: start: 20120510, end: 20120522
  6. NITROGLYCERIN [Concomitant]
     Dosage: ONE PUFF AS NEEDED

REACTIONS (2)
  - DYSPEPSIA [None]
  - RASH [None]
